FAERS Safety Report 19716165 (Version 1)
Quarter: 2021Q3

REPORT INFORMATION
  Report Type: Report from Study
  Country: US (occurrence: US)
  Receive Date: 20210819
  Receipt Date: 20210819
  Transmission Date: 20211014
  Serious: Yes (Disabling, Other)
  Sender: FDA-Public Use
  Company Number: US-SA-2019SA000689

PATIENT
  Age: 58 Year
  Sex: Female

DRUGS (6)
  1. TERIFLUNOMIDE. [Suspect]
     Active Substance: TERIFLUNOMIDE
     Indication: MULTIPLE SCLEROSIS
     Dosage: 14 MG, QD
     Route: 048
     Dates: start: 20181221
  2. VITAMIN B [Concomitant]
     Active Substance: VITAMIN B
     Indication: MULTIPLE SCLEROSIS
     Dosage: UNK UNK, QD
     Route: 048
  3. VITAMIN D [VITAMIN D NOS] [Concomitant]
     Active Substance: VITAMIN D NOS
     Indication: MULTIPLE SCLEROSIS
     Dosage: UNK UNK, QD
     Route: 048
  4. TERIFLUNOMIDE. [Suspect]
     Active Substance: TERIFLUNOMIDE
     Dosage: 14 MG, QD
     Route: 048
     Dates: start: 20191226
  5. FISH OIL [Concomitant]
     Active Substance: FISH OIL
     Indication: ARTHRALGIA
     Dosage: 1 DF, QD
     Route: 048
  6. STOOL SOFTENER (DOCUSATE) [Concomitant]
     Active Substance: DOCUSATE
     Indication: MULTIPLE SCLEROSIS
     Dosage: UNK UNK, BID
     Route: 048

REACTIONS (22)
  - Wound decomposition [Recovered/Resolved]
  - Contusion [Recovered/Resolved]
  - Pneumonia [Unknown]
  - Multiple sclerosis relapse [Unknown]
  - Fatigue [Not Recovered/Not Resolved]
  - Aphasia [Not Recovered/Not Resolved]
  - Laryngitis [Not Recovered/Not Resolved]
  - Oropharyngeal pain [Not Recovered/Not Resolved]
  - Dysstasia [Unknown]
  - Alopecia [Recovered/Resolved]
  - Coronavirus test positive [Recovered/Resolved]
  - Time perception altered [Not Recovered/Not Resolved]
  - Nasopharyngitis [Not Recovered/Not Resolved]
  - Rash [Not Recovered/Not Resolved]
  - Anosmia [Not Recovered/Not Resolved]
  - Cough [Not Recovered/Not Resolved]
  - Mobility decreased [Unknown]
  - Abnormal sleep-related event [Unknown]
  - Feeling abnormal [Not Recovered/Not Resolved]
  - Hyposmia [Not Recovered/Not Resolved]
  - Temperature intolerance [Unknown]
  - COVID-19 [Recovered/Resolved]

NARRATIVE: CASE EVENT DATE: 201812
